FAERS Safety Report 21132871 (Version 2)
Quarter: 2022Q3

REPORT INFORMATION
  Report Type: Report from Study
  Country: BR (occurrence: BR)
  Receive Date: 20220726
  Receipt Date: 20220729
  Transmission Date: 20221027
  Serious: Yes (Hospitalization, Other)
  Sender: FDA-Public Use
  Company Number: BR-JNJFOC-20220743386

PATIENT
  Age: 8 Decade
  Sex: Female

DRUGS (2)
  1. SIMPONI [Suspect]
     Active Substance: GOLIMUMAB
     Indication: Rheumatoid arthritis
     Route: 058
     Dates: start: 2018
  2. METHOTREXATE [Concomitant]
     Active Substance: METHOTREXATE

REACTIONS (13)
  - Sepsis [Unknown]
  - Erysipelas [Unknown]
  - Urinary tract infection [Unknown]
  - Diabetes mellitus [Recovered/Resolved]
  - Oxygen saturation decreased [Not Recovered/Not Resolved]
  - Varicose vein [Unknown]
  - Osteoarthritis [Unknown]
  - Hypertensive crisis [Unknown]
  - Weight decreased [Unknown]
  - Feeling abnormal [Unknown]
  - Immune system disorder [Not Recovered/Not Resolved]
  - Gait inability [Unknown]
  - Faeces discoloured [Unknown]
